FAERS Safety Report 6550795-6 (Version None)
Quarter: 2010Q1

REPORT INFORMATION
  Report Type: 
  Country: None (occurrence: None)
  Receive Date: 20100125
  Receipt Date: 20100113
  Transmission Date: 20100710
  Serious: Yes (Other)
  Sender: FDA-Public Use
  Company Number: US-WATSON-2009-10579

PATIENT
  Sex: Female
  Weight: 59.41 kg

DRUGS (11)
  1. TRIVORA 28 (EE/LEVO) (0.03/0.05;0.04/0.075;0.03/0.125) (WATSON) [Suspect]
     Indication: CONTRACEPTION
     Dosage: 1 TABLET, DAILY
     Route: 048
     Dates: end: 20091205
  2. TRIVORA 28 (EE/LEVO) (0.03/0.05;0.04/0.075;0.03/0.125) (WATSON) [Suspect]
     Indication: DYSPAREUNIA
     Dosage: 1 TABLET, DAILY
     Route: 048
     Dates: start: 20081205, end: 20091205
  3. MULTIVITAMIN                       /00831701/ [Concomitant]
     Indication: SUPPLEMENTATION THERAPY
     Dosage: 1 DAILY
     Route: 048
  4. LEVOTHYROXINE SODIUM [Concomitant]
     Indication: THYROID DISORDER
     Dosage: 112 MCG, DAILY
     Route: 048
     Dates: start: 20080101
  5. ACYCLOVIR [Concomitant]
     Indication: ORAL HERPES
     Dosage: USE AS DIRECTED
     Route: 061
  6. DIFLUCAN [Concomitant]
     Indication: DRUG USE FOR UNKNOWN INDICATION
     Dosage: 150 MG, SINGLE
     Route: 048
  7. FISH OIL [Concomitant]
     Indication: DRUG USE FOR UNKNOWN INDICATION
     Dosage: 3 -4 CAPSULES DAILY
  8. FLAXSEED OIL [Concomitant]
     Indication: DRUG USE FOR UNKNOWN INDICATION
     Dosage: 1 CAPSULE, DAILY
     Route: 048
  9. VALTREX [Concomitant]
     Indication: ORAL HERPES
     Dosage: 1 GM TAB: 2 TABS, Q 12 HRS X 2 DOSES WITH FIRST SIGN OF SYMPTOMS
     Route: 048
  10. XYLITOL [Concomitant]
     Indication: DRUG USE FOR UNKNOWN INDICATION
     Dosage: 2 SPRAYS, TID
     Route: 045
  11. NSAID'S [Concomitant]
     Indication: MYALGIA
     Dosage: UNK
     Route: 048

REACTIONS (16)
  - BUTTERFLY RASH [None]
  - FATIGUE [None]
  - HEADACHE [None]
  - HEPATIC ENZYME INCREASED [None]
  - HYPOTENSION [None]
  - LIBIDO DECREASED [None]
  - MIXED CONNECTIVE TISSUE DISEASE [None]
  - ORTHOSTATIC HYPOTENSION [None]
  - PHOTOSENSITIVITY REACTION [None]
  - PROTEINURIA [None]
  - RENAL FAILURE [None]
  - RENAL TUBULAR ACIDOSIS [None]
  - RENAL VASCULITIS [None]
  - SJOGREN'S SYNDROME [None]
  - SYSTEMIC LUPUS ERYTHEMATOSUS [None]
  - TUBULOINTERSTITIAL NEPHRITIS [None]
